FAERS Safety Report 8232976-9 (Version None)
Quarter: 2012Q1

REPORT INFORMATION
  Report Type: 
  Country: None (occurrence: None)
  Receive Date: 20120326
  Receipt Date: 20120316
  Transmission Date: 20120608
  Serious: Yes (Other)
  Sender: FDA-Public Use
  Company Number: US-BRISTOL-MYERS SQUIBB COMPANY-16458093

PATIENT
  Age: 66 Year
  Sex: Male
  Weight: 97 kg

DRUGS (2)
  1. LEUKINE [Suspect]
     Indication: MALIGNANT MELANOMA
     Dosage: LAST ADMINISTERED DOSE ON 29-FEB-2012.
     Route: 058
     Dates: start: 20110629
  2. IPILIMUMAB [Suspect]
     Indication: MALIGNANT MELANOMA
     Dosage: LAST ADMINISTERED DOSE ON 15-FEB-2012.
     Route: 042
     Dates: start: 20110629

REACTIONS (1)
  - HYPERURICAEMIA [None]
